FAERS Safety Report 15196916 (Version 4)
Quarter: 2018Q4

REPORT INFORMATION
  Report Type: Report from Study
  Country: IT (occurrence: IT)
  Receive Date: 20180725
  Receipt Date: 20181001
  Transmission Date: 20190204
  Serious: Yes (Hospitalization)
  Sender: FDA-Public Use
  Company Number: IT-PFIZER INC-2018296284

PATIENT
  Age: 88 Year
  Sex: Female

DRUGS (6)
  1. NORVASC [Suspect]
     Active Substance: AMLODIPINE BESYLATE
     Indication: HYPERTENSION
     Dosage: 10 MG, SINGLE
     Route: 048
  2. ANTRA /00661201/ [Concomitant]
     Active Substance: OMEPRAZOLE
     Dosage: UNK
  3. CARDIOASPIRIN [Concomitant]
     Active Substance: ASPIRIN
     Dosage: UNK
  4. TAVOR (LORAZEPAM) [Suspect]
     Active Substance: LORAZEPAM
     Indication: ANXIETY
     Dosage: 2 MG, SINGLE
     Route: 048
     Dates: start: 20180610
  5. CONCOR [Concomitant]
     Active Substance: BISOPROLOL FUMARATE
     Dosage: UNK
  6. CARDURA [Concomitant]
     Active Substance: DOXAZOSIN MESYLATE
     Dosage: UNK

REACTIONS (6)
  - Hypotension [Recovering/Resolving]
  - Malaise [Recovering/Resolving]
  - Discharge [Recovering/Resolving]
  - Medication error [Recovering/Resolving]
  - Asthenia [Recovering/Resolving]
  - Wrong dose [Recovering/Resolving]

NARRATIVE: CASE EVENT DATE: 20180612
